FAERS Safety Report 10239522 (Version 3)
Quarter: 2014Q2

REPORT INFORMATION
  Report Type: Report from Study
  Country: AU (occurrence: AU)
  Receive Date: 20140616
  Receipt Date: 20140625
  Transmission Date: 20141212
  Serious: Yes (Hospitalization)
  Sender: FDA-Public Use
  Company Number: AU-VERTEX PHARMACEUTICALS INC-2014-002198

PATIENT
  Age: 27 Year
  Sex: Female
  Weight: 74 kg

DRUGS (8)
  1. KALYDECO [Suspect]
     Indication: CYSTIC FIBROSIS
     Dosage: 150 MG, BID
     Route: 048
     Dates: start: 20140319, end: 20140416
  2. PLACEBO [Suspect]
     Indication: CYSTIC FIBROSIS
     Dosage: 150 MG, BID
     Route: 048
     Dates: start: 20140319, end: 20140416
  3. CREON 25000 [Concomitant]
     Indication: PANCREATIC INSUFFICIENCY
     Dosage: 5 DF, QD
  4. VITAMIN D [Concomitant]
     Indication: VITAMIN D DEFICIENCY
     Dosage: 1000 IU, UNK
  5. AZITHROMYCIN [Concomitant]
     Dosage: 1 G, QW
  6. SALBUTAMOL [Concomitant]
     Indication: CYSTIC FIBROSIS RESPIRATORY INFECTION SUPPRESSION
     Dosage: UNK
     Route: 055
  7. SERETIDE [Concomitant]
     Indication: CYSTIC FIBROSIS RESPIRATORY INFECTION SUPPRESSION
     Dosage: UNK
     Route: 055
  8. ZINC [Concomitant]
     Indication: ZINC DEFICIENCY
     Dosage: 1 DF, QD

REACTIONS (1)
  - Infective pulmonary exacerbation of cystic fibrosis [Recovered/Resolved]
